FAERS Safety Report 8121536-6 (Version None)
Quarter: 2011Q4

REPORT INFORMATION
  Report Type: 
  Country: None (occurrence: None)
  Receive Date: 20111227
  Receipt Date: 20110914
  Transmission Date: 20120403
  Serious: No
  Sender: FDA-Public Use
  Company Number: PHEH2011US04155

PATIENT
  Age: 26 Year
  Sex: Male

DRUGS (1)
  1. GILENYA [Suspect]
     Indication: MULTIPLE SCLEROSIS
     Dosage: 0.5 MG, QD, ORAL
     Route: 048

REACTIONS (7)
  - CONSTIPATION [None]
  - MUSCULAR WEAKNESS [None]
  - JOINT SWELLING [None]
  - ASTHENIA [None]
  - HAEMATOCHEZIA [None]
  - BACK PAIN [None]
  - DRUG INEFFECTIVE [None]
